FAERS Safety Report 14576602 (Version 1)
Quarter: 2018Q1

REPORT INFORMATION
  Report Type: Spontaneous
  Country: US (occurrence: US)
  Receive Date: 20180227
  Receipt Date: 20180227
  Transmission Date: 20180509
  Serious: Yes (Other)
  Sender: FDA-Public Use
  Company Number: US-BAYER-2018-033785

PATIENT
  Age: 78 Year
  Sex: Male

DRUGS (3)
  1. CIPROFLOXACIN. [Concomitant]
     Active Substance: CIPROFLOXACIN
     Dosage: 400 MG, BID
     Route: 042
  2. CLOPIDOGREL [Interacting]
     Active Substance: CLOPIDOGREL BISULFATE
  3. ACETYLSALICYLIC ACID({=100 MG) [Suspect]
     Active Substance: ASPIRIN

REACTIONS (6)
  - Gastrointestinal haemorrhage [None]
  - Post procedural haemorrhage [None]
  - Labelled drug-drug interaction medication error [None]
  - Cardiogenic shock [None]
  - Mediastinal haematoma [None]
  - Thoracic haemorrhage [None]
